FAERS Safety Report 6358698-7 (Version None)
Quarter: 2009Q3

REPORT INFORMATION
  Report Type: 
  Country: None (occurrence: None)
  Receive Date: 20090914
  Receipt Date: 20090831
  Transmission Date: 20100115
  Serious: Yes (Death)
  Sender: FDA-Public Use
  Company Number: FDB-2009-028

PATIENT
  Age: 64 Year
  Sex: Female

DRUGS (3)
  1. TC99M TECHNETIUM SULFUR COLLOID INJECTION [Suspect]
     Indication: SCAN LYMPH NODES
     Dosage: 1.7 MCI, SQ
     Dates: start: 20090720
  2. ULTRA-TECHNEKOW [Suspect]
     Dates: start: 20090720
  3. SEIZURE MEDICATION [Concomitant]

REACTIONS (3)
  - CONVULSION [None]
  - SEPSIS [None]
  - TREATMENT NONCOMPLIANCE [None]
